FAERS Safety Report 12979640 (Version 5)
Quarter: 2017Q1

REPORT INFORMATION
  Report Type: Spontaneous
  Country: JP (occurrence: JP)
  Receive Date: 20161128
  Receipt Date: 20170203
  Transmission Date: 20170428
  Serious: Yes (Hospitalization, Other)
  Sender: FDA-Public Use
  Company Number: JP-PFIZER INC-2016547614

PATIENT
  Age: 67 Year
  Sex: Male
  Weight: 58.9 kg

DRUGS (6)
  1. ALLOPURINOL. [Concomitant]
     Active Substance: ALLOPURINOL
     Dosage: 100 MG, 1X/DAY
     Route: 048
  2. ABILIFY [Concomitant]
     Active Substance: ARIPIPRAZOLE
     Dosage: 3 MG, 2X/DAY
     Route: 048
  3. DEPAKENE [Concomitant]
     Active Substance: VALPROIC ACID
     Dosage: 400 MG, 2X/DAY
     Route: 048
     Dates: end: 20161113
  4. LITHIUM CARBONATE. [Concomitant]
     Active Substance: LITHIUM CARBONATE
     Dosage: 200 TO 300 MG, 2X/DAY
     Route: 048
     Dates: end: 20161113
  5. SUTENT [Suspect]
     Active Substance: SUNITINIB MALATE
     Indication: METASTATIC RENAL CELL CARCINOMA
     Dosage: 50 MG, 1X/DAY
     Route: 048
     Dates: start: 20161101, end: 20161113
  6. TASMOLIN [Concomitant]
     Active Substance: BIPERIDEN
     Dosage: 1 MG, 2X/DAY
     Route: 048

REACTIONS (4)
  - Thyrotoxic crisis [Recovering/Resolving]
  - Neoplasm progression [Unknown]
  - Haemorrhage [Recovered/Resolved]
  - Anaemia [Recovering/Resolving]

NARRATIVE: CASE EVENT DATE: 20161113
